FAERS Safety Report 4915310-9 (Version None)
Quarter: 2006Q1

REPORT INFORMATION
  Report Type: 
  Country: None (occurrence: None)
  Receive Date: 20060217
  Receipt Date: 20060103
  Transmission Date: 20060701
  Serious: Yes (Life-Threatening)
  Sender: FDA-Public Use
  Company Number: FR-GLAXOSMITHKLINE-B0405883A

PATIENT
  Age: 29 Year
  Sex: Male

DRUGS (4)
  1. TRACRIUM [Suspect]
     Route: 042
     Dates: start: 20050106, end: 20050106
  2. CEFACIDAL [Suspect]
     Route: 042
     Dates: start: 20050106, end: 20050106
  3. SUFENTA [Suspect]
     Route: 042
     Dates: start: 20050106, end: 20050106
  4. PROPOFOL [Suspect]
     Route: 042
     Dates: start: 20050106, end: 20050106

REACTIONS (1)
  - ANAPHYLACTIC SHOCK [None]
